FAERS Safety Report 6411256-8 (Version None)
Quarter: 2009Q4

REPORT INFORMATION
  Report Type: 
  Country: None (occurrence: None)
  Receive Date: 20091022
  Receipt Date: 20091013
  Transmission Date: 20100525
  Serious: Yes (Other)
  Sender: FDA-Public Use
  Company Number: JP-PFIZER INC-2009283670

PATIENT
  Age: 10 Year

DRUGS (11)
  1. METHYLPREDNISOLONE AND METHYLPREDNISOLONE ACETATE AND METHYLPREDNISOLO [Suspect]
     Indication: GRAFT VERSUS HOST DISEASE
     Dosage: 100 MG, UNK
     Route: 042
  2. METHYLPREDNISOLONE AND METHYLPREDNISOLONE ACETATE AND METHYLPREDNISOLO [Suspect]
     Dosage: UNK
  3. PREDNISOLONE AND PREDNISOLONE STEAGLATE [Suspect]
     Indication: GRAFT VERSUS HOST DISEASE
     Dosage: 10 MG, UNK
  4. TACROLIMUS [Suspect]
     Indication: GRAFT VERSUS HOST DISEASE
     Dosage: 5 MG, UNK
  5. TACROLIMUS [Suspect]
     Dosage: 2 MG, UNK
  6. TACROLIMUS [Suspect]
     Dosage: 0.5 MG, UNK
  7. TACROLIMUS [Suspect]
     Dosage: 0.2-2.5 MG, DAILY UNTIL DAY 26
     Route: 042
  8. TACROLIMUS [Suspect]
     Dosage: 2 MG, AFTER DAY 27
     Route: 048
  9. CYCLOSPORINE [Suspect]
     Indication: GRAFT VERSUS HOST DISEASE
  10. CYCLOPHOSPHAMIDE [Concomitant]
  11. FLUDARABINE [Concomitant]

REACTIONS (1)
  - POST TRANSPLANT DISTAL LIMB SYNDROME [None]
